FAERS Safety Report 8525449-7 (Version None)
Quarter: 2012Q3

REPORT INFORMATION
  Report Type: 
  Country: None (occurrence: None)
  Receive Date: 20120720
  Receipt Date: 20120712
  Transmission Date: 20120928
  Serious: Yes (Other)
  Sender: FDA-Public Use
  Company Number: SE-JNJFOC-20120604760

PATIENT
  Age: 33 Year
  Sex: Female

DRUGS (7)
  1. IBUMENTIN [Concomitant]
     Route: 065
  2. REMICADE [Suspect]
     Indication: SARCOIDOSIS
     Route: 042
  3. REMICADE [Suspect]
     Dosage: 2ND INFUSION
     Route: 042
     Dates: start: 20110511
  4. PREDNISOLONE [Concomitant]
     Route: 065
  5. KALCIPOS D [Concomitant]
     Route: 048
  6. AZATHIOPRINE [Concomitant]
     Route: 065
  7. OMEPRAZOLE [Concomitant]
     Route: 065

REACTIONS (3)
  - INFUSION RELATED REACTION [None]
  - BLOOD PRESSURE INCREASED [None]
  - RESPIRATORY FAILURE [None]
